FAERS Safety Report 22628402 (Version 1)
Quarter: 2023Q2

REPORT INFORMATION
  Report Type: Spontaneous
  Country: GB (occurrence: GB)
  Receive Date: 20230622
  Receipt Date: 20230622
  Transmission Date: 20230721
  Serious: Yes (Other)
  Sender: FDA-Public Use
  Company Number: None

PATIENT
  Age: 96 Year
  Sex: Female
  Weight: 64 kg

DRUGS (12)
  1. AMLODIPINE [Suspect]
     Active Substance: AMLODIPINE BESYLATE
     Indication: Blood pressure measurement
     Route: 048
     Dates: start: 20220404, end: 20230609
  2. AMITRIPTYLINE HYDROCHLORIDE [Concomitant]
     Active Substance: AMITRIPTYLINE HYDROCHLORIDE
     Dosage: NIGHT
     Dates: start: 20220913, end: 20230413
  3. UMECLIDINIUM BROMIDE\VILANTEROL TRIFENATATE [Concomitant]
     Active Substance: UMECLIDINIUM BROMIDE\VILANTEROL TRIFENATATE
     Route: 055
     Dates: start: 20230404
  4. ASPIRIN [Concomitant]
     Active Substance: ASPIRIN
     Dosage: MORNING
     Dates: start: 20220404
  5. ATORVASTATIN [Concomitant]
     Active Substance: ATORVASTATIN
     Indication: Blood cholesterol
     Dosage: NIGHT
     Dates: start: 20220404
  6. BIMATOPROST [Concomitant]
     Active Substance: BIMATOPROST
     Dosage: NIGHT INTO BOTH EYES
     Dates: start: 20201125, end: 20230413
  7. DULOXETINE [Concomitant]
     Active Substance: DULOXETINE
     Dosage: NIGHT
     Dates: start: 20210125, end: 20230413
  8. GABAPENTIN [Concomitant]
     Active Substance: GABAPENTIN
     Dosage: PREVENT NEUROPAT...
     Dates: start: 20220106
  9. Hylo-Tear [Concomitant]
     Dosage: BOTH EYES FOUR TIMES A DAY. DISCARD...
     Dates: start: 20220106
  10. LATANOPROST [Concomitant]
     Active Substance: LATANOPROST
     Dosage: EVENING (BOTH EYES)
     Dates: start: 20211115, end: 20230413
  11. METFORMIN [Concomitant]
     Active Substance: METFORMIN HYDROCHLORIDE
     Dates: start: 20220404
  12. ALBUTEROL [Concomitant]
     Active Substance: ALBUTEROL
     Dosage: ONE OR TWO PUFFS UPTO FOUR...
     Route: 055
     Dates: start: 20230324

REACTIONS (1)
  - Orthostatic hypotension [Recovering/Resolving]
